FAERS Safety Report 6137496-3 (Version None)
Quarter: 2009Q1

REPORT INFORMATION
  Report Type: 
  Country: None (occurrence: None)
  Receive Date: 20090326
  Receipt Date: 20090310
  Transmission Date: 20090719
  Serious: Yes (Hospitalization, Other)
  Sender: FDA-Public Use
  Company Number: 001#1#2008-00622

PATIENT
  Sex: Male
  Weight: 80 kg

DRUGS (7)
  1. NEUPRO [Suspect]
     Indication: PARKINSON'S DISEASE
     Dosage: (8 MG QD TRANSDERMAL), 4 MG QD,TRANSDERMAL
     Route: 062
     Dates: start: 20070915, end: 20081009
  2. NEUPRO [Suspect]
     Indication: PARKINSON'S DISEASE
     Dosage: (8 MG QD TRANSDERMAL), 4 MG QD,TRANSDERMAL
     Route: 062
     Dates: start: 20081010, end: 20081021
  3. LEVODOPA [Concomitant]
  4. REQUIP [Concomitant]
  5. LEVODOPA BENSERAZIDE HYDROCHLO [Concomitant]
  6. PK-MERZ [Concomitant]
  7. MADOPAR [Concomitant]

REACTIONS (8)
  - CALCINOSIS [None]
  - CHROMATURIA [None]
  - EMPHYSEMA [None]
  - FAECES PALE [None]
  - GALLBLADDER DISORDER [None]
  - HEPATIC ENZYME INCREASED [None]
  - JAUNDICE CHOLESTATIC [None]
  - TREMOR [None]
